FAERS Safety Report 6835627-0 (Version None)
Quarter: 2010Q3

REPORT INFORMATION
  Report Type: 
  Country: None (occurrence: None)
  Receive Date: 20100713
  Receipt Date: 20100705
  Transmission Date: 20110219
  Serious: Yes (Hospitalization)
  Sender: FDA-Public Use
  Company Number: FR-ASTRAZENECA-2010SE31133

PATIENT
  Age: 18900 Day
  Sex: Male

DRUGS (4)
  1. NEXIUM [Suspect]
     Indication: ANTISYNTHETASE SYNDROME
     Route: 048
     Dates: start: 20091022
  2. IMUREL [Suspect]
     Indication: ANTISYNTHETASE SYNDROME
     Route: 048
     Dates: start: 20091022, end: 20100107
  3. CORTANCYL [Suspect]
     Indication: ANTISYNTHETASE SYNDROME
     Route: 048
     Dates: start: 20091022
  4. TEGELINE LFB [Concomitant]
     Indication: LUNG DISORDER
     Route: 042
     Dates: start: 20091022

REACTIONS (1)
  - CYTOLYTIC HEPATITIS [None]
